FAERS Safety Report 7769119-1 (Version None)
Quarter: 2011Q3

REPORT INFORMATION
  Report Type: 
  Country: None (occurrence: None)
  Receive Date: 20110922
  Receipt Date: 20110405
  Transmission Date: 20111222
  Serious: No
  Sender: FDA-Public Use
  Company Number: US-ASTRAZENECA-2011SE19240

PATIENT
  Sex: Female

DRUGS (2)
  1. SEROQUEL XR [Suspect]
     Route: 048
     Dates: start: 20110404, end: 20110404
  2. REMERON [Concomitant]

REACTIONS (3)
  - THINKING ABNORMAL [None]
  - LACK OF SPONTANEOUS SPEECH [None]
  - DISORIENTATION [None]
